FAERS Safety Report 5800938-4 (Version None)
Quarter: 2008Q3

REPORT INFORMATION
  Report Type: 
  Country: None (occurrence: None)
  Receive Date: 20080703
  Receipt Date: 20080630
  Transmission Date: 20090109
  Serious: Yes (Hospitalization)
  Sender: FDA-Public Use
  Company Number: JP-BOEHRINGER INGELHEIM GMBH, GERMANY-2008-BP-07668NB

PATIENT
  Sex: Female
  Weight: 62 kg

DRUGS (17)
  1. MICARDIS [Suspect]
     Indication: HYPERTENSION
     Route: 048
     Dates: start: 20070701
  2. MUCOSTA [Suspect]
     Route: 048
     Dates: start: 20080424
  3. AKINETON [Concomitant]
     Route: 048
     Dates: start: 20070701
  4. LAC-B (BIFIDOBACTERIUM) [Concomitant]
     Route: 048
     Dates: start: 20070701
  5. BROVARIN (BROMVALERYLUREA) [Concomitant]
     Route: 048
     Dates: start: 20070701
  6. MYSLEE [Concomitant]
     Route: 048
     Dates: start: 20070701
  7. LOXONIN (LOXOPROFEN SODIUM) [Concomitant]
     Route: 048
     Dates: start: 20070701
  8. ALFAROL [Concomitant]
     Route: 048
     Dates: start: 20070701
  9. FOSAMAC 5 MG (ALENDRONATE SODIUM HYDRATE) [Concomitant]
     Route: 048
     Dates: start: 20070701
  10. FAMOTIDINE [Concomitant]
     Route: 048
     Dates: start: 20070701
  11. PURSENNID (SENNOSIDE) [Concomitant]
     Route: 048
     Dates: start: 20070701
  12. ACTOS [Concomitant]
     Route: 048
     Dates: start: 20070701
  13. NORVASC [Concomitant]
     Route: 048
     Dates: start: 20070701
  14. CARDENALIN [Concomitant]
     Route: 048
     Dates: start: 20070701
  15. SUPPLEMENT [Concomitant]
     Route: 048
     Dates: start: 20070701
  16. MEILAX [Concomitant]
     Route: 048
     Dates: start: 20070701
  17. SERENACE [Concomitant]
     Route: 048
     Dates: start: 20070701

REACTIONS (2)
  - ALVEOLITIS ALLERGIC [None]
  - PNEUMONIA PNEUMOCOCCAL [None]
